FAERS Safety Report 5297971-0 (Version None)
Quarter: 2007Q2

REPORT INFORMATION
  Report Type: 
  Country: None (occurrence: None)
  Receive Date: 20070416
  Receipt Date: 20070402
  Transmission Date: 20071010
  Serious: Yes (Hospitalization, Disabling)
  Sender: FDA-Public Use
  Company Number: CH-ELI_LILLY_AND_COMPANY-CH200703002996

PATIENT
  Age: 62 Year
  Sex: Male

DRUGS (2)
  1. CYMBALTA [Suspect]
     Indication: DEPRESSION
     Dosage: 60 MG, DAILY (1/D)
     Route: 048
     Dates: start: 20070122, end: 20070306
  2. TRITTICO [Concomitant]
     Indication: SLEEP DISORDER
     Dosage: 50 MG, AS NEEDED
     Route: 048
     Dates: start: 20070301

REACTIONS (2)
  - GRAND MAL CONVULSION [None]
  - UPPER LIMB FRACTURE [None]
